FAERS Safety Report 14465094 (Version 1)
Quarter: 2018Q1

REPORT INFORMATION
  Report Type: Other
  Country: US (occurrence: US)
  Receive Date: 20180130
  Receipt Date: 20180130
  Transmission Date: 20180509
  Serious: No
  Sender: FDA-Public Use
  Company Number: US-ACORDA-ACO_136442_2017

PATIENT
  Sex: Male
  Weight: 71.2 kg

DRUGS (2)
  1. AMPYRA [Suspect]
     Active Substance: DALFAMPRIDINE
     Indication: MULTIPLE SCLEROSIS
     Dosage: 10 MG, Q 12 HRS
     Route: 048
  2. GILENYA [Suspect]
     Active Substance: FINGOLIMOD HYDROCHLORIDE
     Indication: PRODUCT USED FOR UNKNOWN INDICATION
     Dosage: UNKNOWN
     Route: 065

REACTIONS (7)
  - Balance disorder [Unknown]
  - Nuclear magnetic resonance imaging abnormal [Unknown]
  - Urine flow decreased [Unknown]
  - Impaired healing [Unknown]
  - Heart rate decreased [Unknown]
  - Dizziness [Unknown]
  - Immune system disorder [Unknown]
